FAERS Safety Report 25153311 (Version 2)
Quarter: 2025Q2

REPORT INFORMATION
  Report Type: Spontaneous
  Country: US (occurrence: US)
  Receive Date: 20250403
  Receipt Date: 20250408
  Transmission Date: 20250717
  Serious: No
  Sender: CHATTEM
  Company Number: US-OPELLA-2025OHG008850

PATIENT
  Sex: Female

DRUGS (6)
  1. ALLEGRA ALLERGY [Suspect]
     Active Substance: FEXOFENADINE HYDROCHLORIDE
     Indication: Rhinorrhoea
     Route: 065
  2. ALLEGRA D-12 HOUR [Suspect]
     Active Substance: FEXOFENADINE HYDROCHLORIDE\PSEUDOEPHEDRINE HYDROCHLORIDE
     Indication: Nasal congestion
  3. MUCINEX [Suspect]
     Active Substance: GUAIFENESIN
     Indication: Nasal congestion
     Route: 065
  4. MUCINEX [Suspect]
     Active Substance: GUAIFENESIN
     Indication: Hypersensitivity
  5. MUCINEX [Suspect]
     Active Substance: GUAIFENESIN
     Indication: Rhinorrhoea
  6. CLARITIN [Concomitant]
     Active Substance: LORATADINE
     Indication: Product used for unknown indication
     Route: 065

REACTIONS (3)
  - Drug ineffective [Unknown]
  - Intentional product use issue [Unknown]
  - No adverse event [Unknown]
